FAERS Safety Report 9220197 (Version 1)
Quarter: 2013Q2

REPORT INFORMATION
  Report Type: Spontaneous
  Country: MY (occurrence: None)
  Receive Date: 20130405
  Receipt Date: 20130405
  Transmission Date: 20140414
  Serious: Yes (Hospitalization)
  Sender: FDA-Public Use
  Company Number: ACET20130010

PATIENT
  Age: 8 Month
  Sex: Female

DRUGS (1)
  1. Q-PAP [Suspect]
     Indication: DENGUE FEVER

REACTIONS (24)
  - Rash maculo-papular [None]
  - Convulsion [None]
  - Haematemesis [None]
  - Jaundice [None]
  - Fluid overload [None]
  - Aspartate aminotransferase increased [None]
  - Alanine aminotransferase increased [None]
  - International normalised ratio increased [None]
  - Encephalopathy [None]
  - Coagulopathy [None]
  - Hepatitis [None]
  - Malaise [None]
  - Pallor [None]
  - Petechiae [None]
  - Hepatosplenomegaly [None]
  - Ascites [None]
  - Crepitations [None]
  - Melaena [None]
  - Hypertonia [None]
  - Hyperreflexia [None]
  - Hepatic encephalopathy [None]
  - Hepatic failure [None]
  - Overdose [None]
  - Shock [None]
